FAERS Safety Report 4824182-2 (Version None)
Quarter: 2005Q4

REPORT INFORMATION
  Report Type: 
  Country: None (occurrence: None)
  Receive Date: 20051108
  Receipt Date: 20051026
  Transmission Date: 20060501
  Serious: Yes (Hospitalization)
  Sender: FDA-Public Use
  Company Number: B0109102A

PATIENT
  Age: 39 Year
  Sex: Male
  Weight: 78.3362 kg

DRUGS (16)
  1. EPIVIR [Suspect]
     Indication: HEPATIC CIRRHOSIS
     Dosage: 100 MG/PER DAY/ORAL
     Route: 048
     Dates: start: 20010219
  2. NATEGLINIDE [Concomitant]
  3. URSODEOXYCHLOLIC ACID [Concomitant]
  4. FRUSEMIDE [Concomitant]
  5. LACTULOSE [Concomitant]
  6. SPIRONOLACTONE [Concomitant]
  7. ROXATDINE [Concomitant]
  8. TEPRENONE [Concomitant]
  9. VITAMIN E [Concomitant]
  10. STRONG NEO MINOPHAGEN C [Concomitant]
  11. PROTEIN SUPPLEMENT [Concomitant]
  12. LACTULOSE [Concomitant]
  13. SPIRONOLACTONE [Concomitant]
  14. ROXATIDINE ACETATE HCL [Concomitant]
  15. TEPRENONE [Concomitant]
  16. TOCOPHERYL NICOTINATE [Concomitant]

REACTIONS (3)
  - DIABETES MELLITUS [None]
  - DRUG INEFFECTIVE [None]
  - MALAISE [None]
